FAERS Safety Report 14762538 (Version 1)
Quarter: 2018Q2

REPORT INFORMATION
  Report Type: Spontaneous
  Country: US (occurrence: US)
  Receive Date: 20180416
  Receipt Date: 20180416
  Transmission Date: 20180711
  Serious: Yes (Hospitalization, Other)
  Sender: FDA-Public Use
  Company Number: US-ACCORD-065515

PATIENT
  Age: 33 Year
  Sex: Female

DRUGS (7)
  1. CARVEDILOL/CARVEDILOL HYDROCHLODRIDE [Concomitant]
  2. METFORMIN [Concomitant]
     Active Substance: METFORMIN HYDROCHLORIDE
  3. FUROSEMIDE. [Concomitant]
     Active Substance: FUROSEMIDE
  4. PRAVASTATIN. [Concomitant]
     Active Substance: PRAVASTATIN
  5. AMLODIPINE [Concomitant]
     Active Substance: AMLODIPINE BESYLATE
  6. LISINOPRIL. [Suspect]
     Active Substance: LISINOPRIL
     Indication: HYPERTENSION
  7. HYDROCHLOROTHIAZIDE/TRIAMTERENE [Concomitant]

REACTIONS (3)
  - Intestinal angioedema [Recovered/Resolved]
  - Blood glucose increased [Recovered/Resolved]
  - Hypovolaemic shock [Recovered/Resolved]
